FAERS Safety Report 18430040 (Version 1)
Quarter: 2020Q4

REPORT INFORMATION
  Report Type: Spontaneous
  Country: IT (occurrence: IT)
  Receive Date: 20201027
  Receipt Date: 20201027
  Transmission Date: 20210114
  Serious: Yes (Other)
  Sender: FDA-Public Use
  Company Number: IT-LUPIN PHARMACEUTICALS INC.-2020-05704

PATIENT
  Age: 38 Year
  Sex: Female

DRUGS (10)
  1. PREDNISONE. [Suspect]
     Active Substance: PREDNISONE
     Indication: PROPHYLAXIS OF ABORTION
     Dosage: 5 MILLIGRAM, QD
     Route: 065
  2. IMMUNOGLOBULINS NOS [Suspect]
     Active Substance: IMMUNE GLOBULIN NOS
     Indication: PROPHYLAXIS OF ABORTION
     Dosage: 400 MILLIGRAM/KILOGRAM, MONTHLY
     Route: 042
  3. ASPIRIN [ACETYLSALICYLIC ACID] [Suspect]
     Active Substance: ASPIRIN
     Indication: ANTIPHOSPHOLIPID SYNDROME
  4. LOW MOLECULAR WEIGHT HEPARIN [Suspect]
     Active Substance: UNSPECIFIED INGREDIENT
     Indication: ANTIPHOSPHOLIPID SYNDROME
  5. HYDROXYCHLOROQUINE [Suspect]
     Active Substance: HYDROXYCHLOROQUINE
     Indication: PROPHYLAXIS OF ABORTION
     Dosage: 200 MILLIGRAM, QD
     Route: 065
  6. ASPIRIN [ACETYLSALICYLIC ACID] [Suspect]
     Active Substance: ASPIRIN
     Indication: PROPHYLAXIS OF ABORTION
     Dosage: 100 MILLIGRAM, QD.LOW DOSE
     Route: 065
  7. LOW MOLECULAR WEIGHT HEPARIN [Suspect]
     Active Substance: UNSPECIFIED INGREDIENT
     Indication: PROPHYLAXIS OF ABORTION
     Dosage: 4000 INTERNATIONAL UNIT, QD
     Route: 065
  8. HYDROXYCHLOROQUINE [Suspect]
     Active Substance: HYDROXYCHLOROQUINE
     Indication: ANTIPHOSPHOLIPID SYNDROME
  9. PREDNISONE. [Suspect]
     Active Substance: PREDNISONE
     Indication: ANTIPHOSPHOLIPID SYNDROME
  10. IMMUNOGLOBULINS NOS [Suspect]
     Active Substance: IMMUNE GLOBULIN NOS
     Indication: ANTIPHOSPHOLIPID SYNDROME

REACTIONS (2)
  - Normal newborn [Unknown]
  - Exposure during pregnancy [Unknown]
